FAERS Safety Report 4560528-0 (Version None)
Quarter: 2005Q1

REPORT INFORMATION
  Report Type: 
  Country: None (occurrence: None)
  Receive Date: 20050125
  Receipt Date: 20050106
  Transmission Date: 20050727
  Serious: Yes (Other)
  Sender: FDA-Public Use
  Company Number: US-GLAXOSMITHKLINE-A0539686A

PATIENT
  Sex: Female

DRUGS (16)
  1. LAMICTAL [Suspect]
     Indication: BIPOLAR DISORDER
     Route: 048
     Dates: start: 20041020, end: 20050106
  2. MARPLAN [Concomitant]
  3. ATENOLOL [Concomitant]
  4. NORVASC [Concomitant]
  5. VOLTAREN [Concomitant]
  6. PREVACID [Concomitant]
  7. HYDROCODONE [Concomitant]
  8. FOSAMAX [Concomitant]
  9. RISPERDAL [Concomitant]
  10. LORAZEPAM [Concomitant]
  11. DIPENTUM [Concomitant]
  12. AZATHIOPRINE [Concomitant]
  13. ADVAIR DISKUS 100/50 [Concomitant]
  14. MULTIVITAMIN [Concomitant]
  15. MIRALAX [Concomitant]
  16. CITRUCEL [Concomitant]

REACTIONS (8)
  - AGGRESSION [None]
  - DRUG INEFFECTIVE [None]
  - FEELING ABNORMAL [None]
  - INSOMNIA [None]
  - OEDEMA PERIPHERAL [None]
  - SWELLING FACE [None]
  - SWOLLEN TONGUE [None]
  - VISION BLURRED [None]
